FAERS Safety Report 17581670 (Version 1)
Quarter: 2020Q1

REPORT INFORMATION
  Report Type: Spontaneous
  Country: US (occurrence: US)
  Receive Date: 20200325
  Receipt Date: 20200325
  Transmission Date: 20200409
  Serious: No
  Sender: FDA-Public Use
  Company Number: US-NXDC-GLE-0020-2020

PATIENT
  Age: 60 Year
  Sex: Female
  Weight: 85 kg

DRUGS (1)
  1. GLEOLAN [Suspect]
     Active Substance: AMINOLEVULINIC ACID HYDROCHLORIDE
     Indication: PHOTODYNAMIC DIAGNOSTIC PROCEDURE
     Dosage: 1700 MG
     Dates: start: 20200310, end: 20200310

REACTIONS (1)
  - Drug ineffective [Unknown]

NARRATIVE: CASE EVENT DATE: 20200310
